FAERS Safety Report 5018726-8 (Version None)
Quarter: 2006Q2

REPORT INFORMATION
  Report Type: 
  Country: None (occurrence: None)
  Receive Date: 20060606
  Receipt Date: 20060509
  Transmission Date: 20061013
  Serious: Yes (Life-Threatening)
  Sender: FDA-Public Use
  Company Number: NL-ROCHE-447321

PATIENT
  Age: 56 Year
  Sex: Male

DRUGS (7)
  1. CELLCEPT [Suspect]
     Route: 048
     Dates: start: 19990615, end: 20050911
  2. PREDNISONE [Suspect]
     Route: 048
     Dates: start: 19990615
  3. PREDNISONE [Suspect]
     Dosage: REDUCED DOSE.
     Route: 048
  4. NOVORAPID [Concomitant]
     Dosage: DOSING REGIMEN REPORTED AS ^18-16-16^.
     Route: 058
  5. ENALAPRILI MALEAS [Concomitant]
     Route: 048
  6. TRYPTIZOL [Concomitant]
     Route: 048
  7. COLCHICINE [Concomitant]
     Route: 048

REACTIONS (4)
  - ERYSIPELAS [None]
  - JC VIRUS INFECTION [None]
  - PROGRESSIVE MULTIFOCAL LEUKOENCEPHALOPATHY [None]
  - URINARY TRACT INFECTION [None]
